FAERS Safety Report 8782719 (Version 1)
Quarter: 2012Q4

REPORT INFORMATION
  Report Type: 
  Country: FR (occurrence: FR)
  Receive Date: 20120913
  Receipt Date: 20120913
  Transmission Date: 20130627
  Serious: Yes (Hospitalization, Other)
  Sender: FDA-Public Use
  Company Number: FR-ASTRAZENECA-2012SE70392

PATIENT
  Age: 23302 Day
  Sex: Male

DRUGS (1)
  1. ZESTORETIC [Suspect]
     Indication: HYPERTENSION
     Route: 048
     Dates: start: 2001, end: 20110114

REACTIONS (2)
  - Hypergammaglobulinaemia [Unknown]
  - Angioedema [Recovered/Resolved]
